FAERS Safety Report 9146953 (Version 1)
Quarter: 2013Q1

REPORT INFORMATION
  Report Type: Spontaneous
  Country: US (occurrence: None)
  Receive Date: 20130228
  Receipt Date: 20130228
  Transmission Date: 20140127
  Serious: No
  Sender: FDA-Public Use
  Company Number: None

PATIENT
  Age: 64 Year
  Sex: Female
  Weight: 76.66 kg

DRUGS (4)
  1. VENTOLIN [Suspect]
     Dosage: 1 A DAY AS DIRECTED
     Dates: start: 20130111
  2. AZITHROMYCIN [Suspect]
  3. TAMIFLU 75MG [Suspect]
  4. FLUTICASONE 50 MCG [Suspect]

REACTIONS (2)
  - Anosmia [None]
  - Ageusia [None]
